FAERS Safety Report 4339366-X (Version None)
Quarter: 2004Q2

REPORT INFORMATION
  Report Type: 
  Country: None (occurrence: None)
  Receive Date: 20040412
  Receipt Date: 20040329
  Transmission Date: 20050107
  Serious: Yes (Death, Other)
  Sender: FDA-Public Use
  Company Number: SX04010016

PATIENT
  Age: 52 Year
  Sex: Female

DRUGS (16)
  1. XOPENEX [Suspect]
     Indication: ASTHMA
     Dosage: 1.25 MG/3 ML4XD INHALATION
     Route: 055
     Dates: start: 20031124, end: 20031125
  2. CEPHALEXIN [Concomitant]
  3. ZYREXA [Concomitant]
  4. DIFLUCAN [Concomitant]
  5. FLONASE [Concomitant]
  6. PULMICORT [Concomitant]
  7. ADVAIR DISKUS 100/50 [Concomitant]
  8. SINGULAIR [Concomitant]
  9. LIPITOR [Concomitant]
  10. MOBIC [Concomitant]
  11. ZYRTEC [Concomitant]
  12. DIOVAN [Concomitant]
  13. ACTOS [Concomitant]
  14. ACIPHEX [Concomitant]
  15. ELIDEL CREAM [Concomitant]
  16. ATUSS NX [Concomitant]

REACTIONS (5)
  - CARDIO-RESPIRATORY ARREST [None]
  - DRUG INTERACTION [None]
  - FUNGAL INFECTION [None]
  - SOMNOLENCE [None]
  - VENTRICULAR FIBRILLATION [None]
